FAERS Safety Report 8346987-6 (Version None)
Quarter: 2012Q2

REPORT INFORMATION
  Report Type: 
  Country: None (occurrence: None)
  Receive Date: 20120509
  Receipt Date: 20120505
  Transmission Date: 20120825
  Serious: No
  Sender: FDA-Public Use
  Company Number: US-PFIZER INC-2012110587

PATIENT
  Sex: Male
  Weight: 93 kg

DRUGS (8)
  1. ZOLPIDEM TARTRATE [Suspect]
     Indication: ANXIETY
     Dosage: UNK
  2. SUBOXONE [Suspect]
     Indication: PAIN
     Dosage: UNK
  3. VALIUM [Suspect]
     Indication: ANXIETY
     Dosage: UNK
  4. VICODIN [Suspect]
     Dosage: UNK
  5. TRAZODONE HYDROCHLORIDE [Suspect]
     Indication: ANXIETY
     Dosage: UNK
  6. ALPRAZOLAM [Suspect]
     Indication: ANXIETY
     Dosage: UNK
  7. GABAPENTIN [Suspect]
     Indication: ANXIETY
     Dosage: UNK
  8. METOPROLOL [Concomitant]
     Indication: HYPERTENSION
     Dosage: 20 MG, 2X/DAY

REACTIONS (1)
  - DYSPNOEA [None]
